FAERS Safety Report 20526644 (Version 1)
Quarter: 2022Q1

REPORT INFORMATION
  Report Type: Spontaneous
  Country: US (occurrence: None)
  Receive Date: 20220226
  Receipt Date: 20220226
  Transmission Date: 20220423
  Serious: No
  Sender: FDA-Public Use
  Company Number: None

PATIENT
  Age: 36 Year
  Sex: Male
  Weight: 74.25 kg

DRUGS (3)
  1. HUMIRA [Suspect]
     Active Substance: ADALIMUMAB
     Indication: Colitis ulcerative
     Dosage: OTHER QUANTITY : 1 INJECTION(S);?OTHER FREQUENCY : PER WEEK;?
     Route: 030
     Dates: start: 20220226, end: 20220226
  2. PROAIR HFA (ALBUTEROL SULFATE) [Concomitant]
  3. HUMIRA(R) PEN [Concomitant]

REACTIONS (5)
  - Injection site extravasation [None]
  - Needle issue [None]
  - Injection site pain [None]
  - Injection site swelling [None]
  - Device malfunction [None]

NARRATIVE: CASE EVENT DATE: 20220226
